FAERS Safety Report 9775943 (Version 7)
Quarter: 2014Q1

REPORT INFORMATION
  Report Type: Spontaneous
  Country: JP (occurrence: JP)
  Receive Date: 20131220
  Receipt Date: 20140225
  Transmission Date: 20141002
  Serious: Yes (Other)
  Sender: FDA-Public Use
  Company Number: JP-JNJFOC-20131211914

PATIENT
  Age: 42 Year
  Sex: Female
  Weight: 56 kg

DRUGS (9)
  1. REMICADE [Suspect]
     Indication: PSORIASIS
     Route: 042
     Dates: start: 20100729
  2. REMICADE [Suspect]
     Indication: PSORIASIS
     Route: 042
     Dates: start: 20100924
  3. REMICADE [Suspect]
     Indication: PSORIASIS
     Route: 042
  4. REMICADE [Suspect]
     Indication: PSORIASIS
     Route: 042
     Dates: start: 20100603
  5. REMICADE [Suspect]
     Indication: PSORIASIS
     Route: 042
     Dates: start: 20100506
  6. REMICADE [Suspect]
     Indication: PSORIASIS
     Route: 042
     Dates: start: 20100421
  7. REMICADE [Suspect]
     Indication: PSORIASIS
     Route: 042
     Dates: start: 2005
  8. BETAMETHASONE BUTYRATE PROPIONATE [Concomitant]
     Indication: PSORIASIS
     Route: 065
     Dates: end: 20070729
  9. OXAROL [Concomitant]
     Indication: PSORIASIS
     Route: 065
     Dates: end: 20100729

REACTIONS (9)
  - Psoriatic arthropathy [Recovering/Resolving]
  - Dyspnoea [Unknown]
  - Erythema [Unknown]
  - Infusion related reaction [Unknown]
  - PO2 decreased [Unknown]
  - Urticaria [Recovered/Resolved]
  - Pharyngitis [Unknown]
  - Drug ineffective [Unknown]
  - Drug eruption [Unknown]
